FAERS Safety Report 9262689 (Version 1)
Quarter: 2013Q2

REPORT INFORMATION
  Report Type: Spontaneous
  Country: US (occurrence: US)
  Receive Date: 20130430
  Receipt Date: 20130430
  Transmission Date: 20140414
  Serious: No
  Sender: FDA-Public Use
  Company Number: US-PFIZER INC-2013129240

PATIENT
  Age: 59 Year
  Sex: Male

DRUGS (11)
  1. SOMAVERT [Suspect]
     Dosage: 20 MG, 1X/DAY
     Route: 058
  2. CARVEDILOL [Concomitant]
     Dosage: 3.125 MG, UNK
  3. SIMCOR [Concomitant]
     Dosage: 1000-40
  4. ENALAPRIL [Concomitant]
     Dosage: 2.5 MG, UNK
  5. AMIODARONE [Concomitant]
     Dosage: 200 MG, UNK
  6. BABY ASPIRIN [Concomitant]
     Dosage: 81 MG, UNK
  7. WARFARIN [Concomitant]
     Dosage: 1 MG, UNK
  8. PANTOPRAZOLE [Concomitant]
     Dosage: 20 MG, UNK
  9. ZYRTEC [Concomitant]
     Dosage: 5 MG, UNK
  10. TESTOSTERONE [Concomitant]
     Dosage: UNK
  11. LEVOTHYROXINE [Concomitant]
     Dosage: 25 UG, UNK

REACTIONS (1)
  - Injection site pain [Unknown]
